FAERS Safety Report 7825140-6 (Version None)
Quarter: 2011Q4

REPORT INFORMATION
  Report Type: 
  Country: None (occurrence: None)
  Receive Date: 20111019
  Receipt Date: 20111007
  Transmission Date: 20120403
  Serious: Yes (Other)
  Sender: FDA-Public Use
  Company Number: DK-JNJFOC-20111004321

PATIENT
  Age: 6 Decade
  Sex: Female

DRUGS (1)
  1. REMICADE [Suspect]
     Indication: CROHN'S DISEASE
     Dosage: SIX MONTHS ON INFLIXIMAB
     Route: 042
     Dates: start: 20110401

REACTIONS (1)
  - BREAST CANCER METASTATIC [None]
